FAERS Safety Report 19473088 (Version 1)
Quarter: 2021Q2

REPORT INFORMATION
  Report Type: Spontaneous
  Country: US (occurrence: US)
  Receive Date: 20210629
  Receipt Date: 20210629
  Transmission Date: 20210717
  Serious: No
  Sender: FDA-Public Use
  Company Number: US-AMERICAN REGENT INC-2020001457

PATIENT
  Age: 70 Year
  Sex: Female

DRUGS (3)
  1. CAFFEINE CITRATE INJECTION, USP (0020?01) [Suspect]
     Active Substance: CAFFEINE CITRATE
     Indication: PRODUCT USED FOR UNKNOWN INDICATION
     Route: 065
  2. MYRBETRIQ [Suspect]
     Active Substance: MIRABEGRON
     Indication: PRODUCT USED FOR UNKNOWN INDICATION
     Dosage: 25 MILLIGRAM,  ONCE DAILY QD
     Dates: start: 201806, end: 201807
  3. MYRBETRIQ [Suspect]
     Active Substance: MIRABEGRON
     Dosage: 50 MILLIGRAM ONCE DAILY
     Route: 065
     Dates: start: 201807, end: 201909

REACTIONS (4)
  - Insomnia [Unknown]
  - Drug ineffective [Unknown]
  - Idiosyncratic drug reaction [Unknown]
  - Product use issue [Unknown]
